FAERS Safety Report 19609527 (Version 2)
Quarter: 2021Q3

REPORT INFORMATION
  Report Type: Spontaneous
  Country: CN (occurrence: CN)
  Receive Date: 20210726
  Receipt Date: 20210803
  Transmission Date: 20211014
  Serious: Yes (Other)
  Sender: FDA-Public Use
  Company Number: CN-UCBSA-2020046333

PATIENT
  Age: 37 Year
  Sex: Female

DRUGS (2)
  1. CIMZIA [Suspect]
     Active Substance: CERTOLIZUMAB PEGOL
     Indication: UNDIFFERENTIATED CONNECTIVE TISSUE DISEASE
     Dosage: 200 MILLIGRAM, EV 4 WEEKS
     Route: 058
     Dates: start: 20201102, end: 20201102
  2. CIMZIA [Suspect]
     Active Substance: CERTOLIZUMAB PEGOL
     Indication: OFF LABEL USE

REACTIONS (3)
  - Off label use [Unknown]
  - Abortion spontaneous [Unknown]
  - Maternal exposure during pregnancy [Unknown]

NARRATIVE: CASE EVENT DATE: 20201102
